FAERS Safety Report 8171957-0 (Version None)
Quarter: 2012Q1

REPORT INFORMATION
  Report Type: 
  Country: None (occurrence: None)
  Receive Date: 20120228
  Receipt Date: 20120209
  Transmission Date: 20120608
  Serious: Yes (Death, Hospitalization)
  Sender: FDA-Public Use
  Company Number: ES-ROCHE-1006776

PATIENT
  Sex: Female
  Weight: 65.5 kg

DRUGS (9)
  1. LEVOLEUCOVORIN CALCIUM [Concomitant]
     Dates: start: 20110228
  2. PREDNISONE [Concomitant]
     Dates: start: 20101215
  3. METHOTREXATE [Concomitant]
     Dates: start: 20101215
  4. INSULIN [Concomitant]
     Dates: start: 20110101
  5. ENALAPRIL [Concomitant]
     Dates: start: 20080601
  6. METAMIZOL [Concomitant]
  7. NALOXONE HYDROCHLORIDE/OXYCODONE HYDROCHLORIDE [Concomitant]
     Dosage: DAILY DOSE: 40/20 MG
     Dates: start: 20110228
  8. ACTEMRA [Suspect]
     Indication: RHEUMATOID ARTHRITIS
     Dosage: LAST DOSE PRIOR TO SAE: 13 JAN 2011
     Route: 042
     Dates: start: 20101215
  9. ADALIMUMAB [Concomitant]
     Dates: start: 20110228

REACTIONS (1)
  - PANCREATIC NEOPLASM [None]
